FAERS Safety Report 20567484 (Version 1)
Quarter: 2022Q1

REPORT INFORMATION
  Report Type: Spontaneous
  Country: GB (occurrence: GB)
  Receive Date: 20220308
  Receipt Date: 20220308
  Transmission Date: 20220423
  Serious: Yes (Other)
  Sender: FDA-Public Use
  Company Number: GB-VERTEX PHARMACEUTICALS-2022-003539

PATIENT
  Age: 39 Year
  Sex: Male

DRUGS (11)
  1. ELEXACAFTOR\IVACAFTOR\TEZACAFTOR [Suspect]
     Active Substance: ELEXACAFTOR\IVACAFTOR\TEZACAFTOR
     Indication: Cystic fibrosis
     Dosage: 75 MG IVACAFTOR/50 MG TEZACAFTOR/100 MG ELEXACAFTOR
     Route: 048
     Dates: start: 20210919, end: 20220207
  2. ELEXACAFTOR\IVACAFTOR\TEZACAFTOR [Suspect]
     Active Substance: ELEXACAFTOR\IVACAFTOR\TEZACAFTOR
     Dosage: DOSE AT NIGHT
     Route: 048
  3. ELEXACAFTOR\IVACAFTOR\TEZACAFTOR [Suspect]
     Active Substance: ELEXACAFTOR\IVACAFTOR\TEZACAFTOR
     Dosage: 2 KAFTRIO/1 KAFTRIO ON ALTERNATE MORNINGS WITH NO EVENING DOSE OF KALYDECO TAKEN
     Route: 048
     Dates: start: 20211110, end: 20220207
  4. KALYDECO [Suspect]
     Active Substance: IVACAFTOR
     Indication: Cystic fibrosis
     Dosage: UNK FREQ
     Route: 048
     Dates: start: 20210919, end: 202202
  5. KALYDECO [Suspect]
     Active Substance: IVACAFTOR
     Dosage: IN THE MORNING
     Route: 048
     Dates: end: 20211110
  6. CREON [Concomitant]
     Active Substance: PANCRELIPASE AMYLASE\PANCRELIPASE LIPASE\PANCRELIPASE PROTEASE
     Dosage: UNK
     Route: 065
  7. CITALOPRAM [Concomitant]
     Active Substance: CITALOPRAM HYDROBROMIDE
  8. FIASP [Concomitant]
     Active Substance: INSULIN ASPART
  9. OMEPRAZOLE [Concomitant]
     Active Substance: OMEPRAZOLE
  10. TRESIBA [Concomitant]
     Active Substance: INSULIN DEGLUDEC
  11. URSODIOL [Concomitant]
     Active Substance: URSODIOL

REACTIONS (6)
  - Depressed mood [Not Recovered/Not Resolved]
  - Sleep disorder [Not Recovered/Not Resolved]
  - Blood alkaline phosphatase increased [Recovering/Resolving]
  - Aspartate aminotransferase increased [Recovering/Resolving]
  - Alanine aminotransferase increased [Recovering/Resolving]
  - Diarrhoea [Recovered/Resolved]

NARRATIVE: CASE EVENT DATE: 20210922
